FAERS Safety Report 12972031 (Version 4)
Quarter: 2016Q4

REPORT INFORMATION
  Report Type: Spontaneous
  Country: US (occurrence: US)
  Receive Date: 20161124
  Receipt Date: 20161209
  Transmission Date: 20170207
  Serious: Yes (Hospitalization)
  Sender: FDA-Public Use
  Company Number: US-HORIZON-RAV-0253-2016

PATIENT
  Age: 4 Year
  Sex: Female

DRUGS (1)
  1. RAVICTI [Suspect]
     Active Substance: GLYCEROL PHENYLBUTYRATE
     Indication: UREA CYCLE ENZYME DEFICIENCY
     Dosage: 2.5 ML TID
     Dates: start: 20160810

REACTIONS (3)
  - Ammonia increased [Recovered/Resolved]
  - Gastrointestinal tube insertion [Unknown]
  - Diet refusal [Unknown]

NARRATIVE: CASE EVENT DATE: 20161031
